FAERS Safety Report 6130111-4 (Version None)
Quarter: 2009Q1

REPORT INFORMATION
  Report Type: 
  Country: None (occurrence: None)
  Receive Date: 20090324
  Receipt Date: 20090312
  Transmission Date: 20090719
  Serious: Yes (Death, Hospitalization)
  Sender: FDA-Public Use
  Company Number: FR-WYE-H08624609

PATIENT
  Age: 71 Year
  Sex: Male

DRUGS (4)
  1. INIPOMP [Suspect]
     Dosage: UNKNOWN
     Route: 048
     Dates: start: 20081231
  2. OFLOXACIN [Concomitant]
     Indication: ESCHAR
     Dosage: UNKNOWN
  3. AMOXICILLIN [Concomitant]
     Indication: ESCHAR
     Dosage: UNKNOWN
  4. EQUANIL [Suspect]
     Dosage: UNKNOWN
     Route: 048
     Dates: start: 20090112

REACTIONS (11)
  - CONDITION AGGRAVATED [None]
  - DIABETES MELLITUS [None]
  - HAEMOGLOBIN DECREASED [None]
  - HYPOTENSION [None]
  - IMMUNOGLOBULINS INCREASED [None]
  - LEUKOPENIA [None]
  - MULTI-ORGAN FAILURE [None]
  - OXYGEN SATURATION DECREASED [None]
  - PLATELET COUNT DECREASED [None]
  - RED BLOOD CELL COUNT DECREASED [None]
  - SEPSIS [None]
